FAERS Safety Report 10442716 (Version 2)
Quarter: 2014Q3

REPORT INFORMATION
  Report Type: Spontaneous
  Country: BR (occurrence: BR)
  Receive Date: 20140909
  Receipt Date: 20140923
  Transmission Date: 20150326
  Serious: Yes (Hospitalization, Other)
  Sender: FDA-Public Use
  Company Number: PHHY2014BR115800

PATIENT
  Sex: Female

DRUGS (5)
  1. FORASEQ [Suspect]
     Active Substance: BUDESONIDE\FORMOTEROL FUMARATE
     Indication: ASTHMA
     Dosage: CONTINUOUS USE
     Route: 048
     Dates: start: 2009
  2. CORTICOSTEROIDS [Suspect]
     Active Substance: CORTICOSTEROID NOS
  3. DIOVAN [Suspect]
     Active Substance: VALSARTAN
     Indication: HYPERTENSION
     Dosage: UNK, QD (IN THE MORNING AT 7AM)
     Route: 048
  4. FORASEQ [Suspect]
     Active Substance: BUDESONIDE\FORMOTEROL FUMARATE
     Dosage: UNK, PRN (USED ONLY WHEN EXPERIENCED EPISODES OF ASTHMA)
     Route: 048
  5. CLOPIN [Suspect]
     Active Substance: CLOPIDOGREL BISULFATE

REACTIONS (27)
  - Rubber sensitivity [Unknown]
  - Viral infection [Unknown]
  - Osteoporosis [Unknown]
  - Gastritis [Recovering/Resolving]
  - Aphonia [Unknown]
  - Urinary tract infection [Recovered/Resolved]
  - Dysuria [Unknown]
  - Ulcer [Recovering/Resolving]
  - Vein disorder [Unknown]
  - Pus in stool [Unknown]
  - Hypersensitivity [Unknown]
  - Asthma [Unknown]
  - Epilepsy [Unknown]
  - Asthenia [Unknown]
  - Gastrointestinal infection [Unknown]
  - Abdominal discomfort [Unknown]
  - Pain [Unknown]
  - Syncope [Unknown]
  - Cerebral atrophy [Unknown]
  - Streptococcal urinary tract infection [Unknown]
  - Asthmatic crisis [Unknown]
  - Gastrointestinal disorder [Unknown]
  - Crystalluria [Unknown]
  - Incorrect route of drug administration [Unknown]
  - Escherichia infection [Unknown]
  - Uterine infection [Unknown]
  - Fatigue [Unknown]

NARRATIVE: CASE EVENT DATE: 2014
